FAERS Safety Report 23285513 (Version 1)
Quarter: 2023Q4

REPORT INFORMATION
  Report Type: Spontaneous
  Country: US (occurrence: US)
  Receive Date: 20231211
  Receipt Date: 20231211
  Transmission Date: 20240109
  Serious: No
  Sender: FDA-Public Use
  Company Number: US-SA-SAC20231206000994

PATIENT
  Age: 4 Year
  Sex: Female

DRUGS (4)
  1. DUPIXENT [Suspect]
     Active Substance: DUPILUMAB
     Indication: Dermatitis atopic
     Dosage: 300 MG, Q4W
     Route: 058
     Dates: start: 202308
  2. XYZAL [Concomitant]
     Active Substance: LEVOCETIRIZINE DIHYDROCHLORIDE
  3. NASONEX [Concomitant]
     Active Substance: MOMETASONE FUROATE
  4. FERRITIN [Concomitant]
     Active Substance: FERRITIN

REACTIONS (2)
  - Paraesthesia [Unknown]
  - Rash [Unknown]

NARRATIVE: CASE EVENT DATE: 20230101
